FAERS Safety Report 16960916 (Version 3)
Quarter: 2020Q1

REPORT INFORMATION
  Report Type: Report from Study
  Country: BR (occurrence: BR)
  Receive Date: 20191025
  Receipt Date: 20200219
  Transmission Date: 20200409
  Serious: Yes (Other)
  Sender: FDA-Public Use
  Company Number: PHHY2019BR030276

PATIENT
  Age: 65 Year
  Sex: Male
  Weight: 67 kg

DRUGS (4)
  1. COSENTYX [Suspect]
     Active Substance: SECUKINUMAB
     Dosage: UNK
     Route: 065
     Dates: start: 20200201
  2. COSENTYX [Suspect]
     Active Substance: SECUKINUMAB
     Indication: PSORIATIC ARTHROPATHY
     Dosage: 300 MG, QW
     Route: 058
     Dates: start: 20190114
  3. METFORMIN [Suspect]
     Active Substance: METFORMIN HYDROCHLORIDE
     Indication: PRODUCT USED FOR UNKNOWN INDICATION
     Route: 065
  4. COSENTYX [Suspect]
     Active Substance: SECUKINUMAB
     Indication: PSORIASIS
     Dosage: UNK
     Route: 058

REACTIONS (51)
  - Jaw fracture [Unknown]
  - Macule [Unknown]
  - Erythema [Unknown]
  - Wound haemorrhage [Recovering/Resolving]
  - Fatigue [Unknown]
  - Angiopathy [Unknown]
  - Hypersensitivity [Unknown]
  - Arthralgia [Not Recovered/Not Resolved]
  - Suicidal ideation [Unknown]
  - Nail disorder [Unknown]
  - Genital rash [Unknown]
  - Insomnia [Unknown]
  - Paraesthesia [Unknown]
  - Anxiety [Unknown]
  - Psoriasis [Unknown]
  - Headache [Recovered/Resolved]
  - Somnolence [Recovering/Resolving]
  - Dizziness [Recovering/Resolving]
  - Pruritus [Unknown]
  - Urinary incontinence [Unknown]
  - Stress [Unknown]
  - Dermatitis contact [Unknown]
  - Dermatitis [Unknown]
  - Hyperhidrosis [Recovered/Resolved]
  - Macule [Recovered/Resolved]
  - Burning sensation [Recovering/Resolving]
  - Visual impairment [Unknown]
  - Movement disorder [Not Recovered/Not Resolved]
  - Sluggishness [Recovered/Resolved]
  - Hunger [Recovering/Resolving]
  - Photosensitivity reaction [Unknown]
  - Dandruff [Unknown]
  - Pain [Not Recovered/Not Resolved]
  - Inappropriate schedule of product administration [Unknown]
  - Malaise [Recovered/Resolved]
  - Dyspnoea [Unknown]
  - Skin irritation [Recovering/Resolving]
  - Wound [Recovering/Resolving]
  - Genital erythema [Unknown]
  - Nervousness [Unknown]
  - Asthenia [Not Recovered/Not Resolved]
  - Pain in extremity [Not Recovered/Not Resolved]
  - Muscle spasms [Not Recovered/Not Resolved]
  - Mental impairment [Unknown]
  - Secretion discharge [Unknown]
  - Pruritus [Recovering/Resolving]
  - Wound complication [Recovering/Resolving]
  - Gait disturbance [Not Recovered/Not Resolved]
  - Back pain [Recovering/Resolving]
  - Myalgia [Not Recovered/Not Resolved]
  - Spinal pain [Not Recovered/Not Resolved]

NARRATIVE: CASE EVENT DATE: 20190204
